FAERS Safety Report 10038105 (Version 1)
Quarter: 2014Q1

REPORT INFORMATION
  Report Type: Spontaneous
  Country: US (occurrence: None)
  Receive Date: 20140306
  Receipt Date: 20140306
  Transmission Date: 20141002
  Serious: Yes (Hospitalization)
  Sender: FDA-Public Use
  Company Number: 163-21880-12111514

PATIENT
  Age: 71 Year
  Sex: Female
  Weight: 77.11 kg

DRUGS (7)
  1. REVLIMID [Suspect]
     Indication: PLASMA CELL MYELOMA
     Dosage: 15 MG, 1 IN 1 D, PO 04/24/2012 - UNKNOWN THERAPY DATES
     Route: 048
     Dates: start: 20120404
  2. VITAMIN B6 (PYRIDOXINE HYDROCHLORIDE) [Concomitant]
  3. VITAMIN B12 (CYANOCOBALAMIN) [Concomitant]
  4. VITAMIN D (ERGOCALCIFEROL) [Concomitant]
  5. ASPIRINE (ACETYLSALICYLIC ACID) [Concomitant]
  6. DYAZIDE [Concomitant]
  7. NORVASC (AMLODIPINE BESILATE) [Concomitant]

REACTIONS (1)
  - Diarrhoea [None]
